FAERS Safety Report 16916702 (Version 9)
Quarter: 2021Q4

REPORT INFORMATION
  Report Type: Report from Study
  Country: None (occurrence: FR)
  Receive Date: 20191015
  Receipt Date: 20211020
  Transmission Date: 20220303
  Serious: Yes (Hospitalization, Other)
  Sender: FDA-Public Use
  Company Number: FR-ABBVIE-19K-056-2821876-00

PATIENT
  Age: 70 Year
  Sex: Male
  Weight: 77 kg

DRUGS (19)
  1. VENETOCLAX [Suspect]
     Active Substance: VENETOCLAX
     Indication: Chronic lymphocytic leukaemia
     Route: 048
     Dates: start: 20190416, end: 20190422
  2. VENETOCLAX [Suspect]
     Active Substance: VENETOCLAX
     Route: 048
     Dates: start: 20190423, end: 20190429
  3. VENETOCLAX [Suspect]
     Active Substance: VENETOCLAX
     Route: 048
     Dates: start: 20190430, end: 20190506
  4. VENETOCLAX [Suspect]
     Active Substance: VENETOCLAX
     Route: 048
     Dates: start: 20190507, end: 20190513
  5. VENETOCLAX [Suspect]
     Active Substance: VENETOCLAX
     Route: 048
     Dates: start: 20190514
  6. IBRUTINIB [Concomitant]
     Active Substance: IBRUTINIB
     Indication: Chronic lymphocytic leukaemia
     Dates: start: 20160120, end: 20190404
  7. IBRUTINIB [Concomitant]
     Active Substance: IBRUTINIB
     Dates: start: 20190415, end: 20190515
  8. IBRUTINIB [Concomitant]
     Active Substance: IBRUTINIB
     Dates: start: 20190516
  9. KARDEGIC [Concomitant]
     Active Substance: ASPIRIN DL-LYSINE
     Indication: Blood disorder prophylaxis
     Dates: start: 2018
  10. BACTRIM [Concomitant]
     Active Substance: SULFAMETHOXAZOLE\TRIMETHOPRIM
     Indication: Antiviral prophylaxis
     Dates: start: 2018
  11. VALACYCLOVIR HYDROCHLORIDE [Concomitant]
     Active Substance: VALACYCLOVIR HYDROCHLORIDE
     Indication: Antiviral prophylaxis
     Dates: start: 2018
  12. OMEPRAZOLE [Concomitant]
     Active Substance: OMEPRAZOLE
     Indication: Gastrooesophageal reflux prophylaxis
     Dates: start: 2018
  13. HYDROCHLOROTHIAZIDE\TELMISARTAN [Concomitant]
     Active Substance: HYDROCHLOROTHIAZIDE\TELMISARTAN
     Indication: Hypertension
     Dates: start: 1996
  14. ALLOPURINOL [Concomitant]
     Active Substance: ALLOPURINOL
     Indication: Prophylaxis
     Dates: start: 20180416
  15. NICARDIPINE [Concomitant]
     Active Substance: NICARDIPINE
     Indication: Hypertension
     Dates: start: 20190429, end: 20190513
  16. OFLOXACIN [Concomitant]
     Active Substance: OFLOXACIN
     Indication: Ear infection
     Dates: start: 20190429
  17. OFLOXACIN [Concomitant]
     Active Substance: OFLOXACIN
     Indication: Otitis media
  18. AMLODIPINE [Concomitant]
     Active Substance: AMLODIPINE BESYLATE
     Indication: Hypertension
     Dates: start: 20190513, end: 20190523
  19. RASBURICASE [Concomitant]
     Active Substance: RASBURICASE
     Indication: Prophylaxis
     Dates: start: 20190415, end: 20190509

REACTIONS (7)
  - Bowen^s disease [Recovered/Resolved]
  - Cataract [Recovered/Resolved]
  - COVID-19 [Recovered/Resolved]
  - Otitis media [Recovering/Resolving]
  - Off label use [Unknown]
  - Dermatitis bullous [Not Recovered/Not Resolved]
  - Therapeutic product effect incomplete [Unknown]

NARRATIVE: CASE EVENT DATE: 20190401
